FAERS Safety Report 23979543 (Version 3)
Quarter: 2024Q3

REPORT INFORMATION
  Report Type: Spontaneous
  Country: US (occurrence: US)
  Receive Date: 20240616
  Receipt Date: 20240731
  Transmission Date: 20241016
  Serious: No
  Sender: SANOFI AVENTIS
  Company Number: US-SA-SAC20240612000227

PATIENT
  Age: 77 Year
  Sex: Male

DRUGS (10)
  1. DUPIXENT [Suspect]
     Active Substance: DUPILUMAB
     Indication: Dermatitis atopic
     Dosage: 600 MG, 1X
     Route: 058
     Dates: start: 202403, end: 202403
  2. DUPIXENT [Suspect]
     Active Substance: DUPILUMAB
     Dosage: 300 MG, QOW
     Route: 058
     Dates: start: 2024
  3. DOXYCYCLINE HYCLATE [Concomitant]
     Active Substance: DOXYCYCLINE HYCLATE
     Dosage: 1 DF, QD, 1 CAPSULE BY MOUTH DAILY
     Route: 048
  4. HYDROXYZINE HYDROCHLORIDE [Concomitant]
     Active Substance: HYDROXYZINE HYDROCHLORIDE
     Indication: Pruritus
     Dosage: 1 TABLET BY MOUTH QHS TAKE ONE TABLET NIGHTLY AS NEEDED
     Route: 048
     Dates: start: 20231114
  5. KETOCONAZOLE [Concomitant]
     Active Substance: KETOCONAZOLE
     Dosage: 1 APPLICATION ON THE SKIN BID APPLY 2 TIMES DAILY TO ANKLES AND FEET, BID
     Route: 061
  6. METOPROLOL SUCCINATE [Concomitant]
     Active Substance: METOPROLOL SUCCINATE
     Dosage: UNK
  7. VITAMINS [Concomitant]
     Active Substance: VITAMINS
  8. SERNIVO [Concomitant]
     Active Substance: BETAMETHASONE DIPROPIONATE
     Dosage: 1 SQUIRT ON THE SKIN DAILY, QD
     Route: 061
  9. TERAZOSIN [Concomitant]
     Active Substance: TERAZOSIN HYDROCHLORIDE
  10. TRIAMCINOLONE ACETONIDE [Concomitant]
     Active Substance: TRIAMCINOLONE ACETONIDE
     Dosage: 1 APPLICATION ON THE SKIN, BID
     Route: 061
     Dates: start: 20231109

REACTIONS (9)
  - Somnolence [Recovered/Resolved]
  - Urticaria [Unknown]
  - Fatigue [Unknown]
  - Faeces discoloured [Unknown]
  - Illness [Unknown]
  - Dizziness exertional [Unknown]
  - Dizziness [Unknown]
  - Dizziness postural [Unknown]
  - Sinusitis [Unknown]

NARRATIVE: CASE EVENT DATE: 20240101
